FAERS Safety Report 10255190 (Version 1)
Quarter: 2014Q2

REPORT INFORMATION
  Report Type: Spontaneous
  Country: US (occurrence: None)
  Receive Date: 20140522
  Receipt Date: 20140522
  Transmission Date: 20141212
  Serious: No
  Sender: FDA-Public Use
  Company Number: 1000054430

PATIENT
  Sex: Male

DRUGS (1)
  1. TUDORZA PRESSAIR (ACLIDINIUM BROMIDE) (400 MICROGRAM) [Suspect]
     Route: 055
     Dates: start: 20140124, end: 20140125

REACTIONS (1)
  - Urticaria [None]
